FAERS Safety Report 13284545 (Version 3)
Quarter: 2017Q2

REPORT INFORMATION
  Report Type: Spontaneous
  Country: BR (occurrence: BR)
  Receive Date: 20170301
  Receipt Date: 20170413
  Transmission Date: 20170830
  Serious: Yes (Other)
  Sender: FDA-Public Use
  Company Number: BR-SA-2017SA031136

PATIENT
  Sex: Male

DRUGS (6)
  1. EVEROLIMUS [Concomitant]
     Active Substance: EVEROLIMUS
     Route: 048
     Dates: start: 20170213
  2. HYDROCORTISONE. [Concomitant]
     Active Substance: HYDROCORTISONE
     Route: 042
     Dates: start: 20170213, end: 20170215
  3. THYMOGLOBULINE [Suspect]
     Active Substance: LAPINE T-LYMPHOCYTE IMMUNE GLOBULIN
     Indication: IMMUNOSUPPRESSANT DRUG THERAPY
     Route: 042
     Dates: start: 20170213, end: 20170213
  4. TACROLIMUS. [Concomitant]
     Active Substance: TACROLIMUS
     Route: 048
     Dates: start: 20170213
  5. METAMIZOLE [Concomitant]
     Active Substance: METAMIZOLE
     Dosage: 500MG/ML / 2ML
     Route: 042
     Dates: start: 20170214, end: 20170214
  6. PLASIL [Concomitant]
     Active Substance: METOCLOPRAMIDE HYDROCHLORIDE
     Dosage: 5MG/ML / 2ML
     Route: 042
     Dates: start: 20170213, end: 20170213

REACTIONS (3)
  - Agitation [Recovering/Resolving]
  - Confusional state [Recovered/Resolved]
  - Generalised tonic-clonic seizure [Recovering/Resolving]

NARRATIVE: CASE EVENT DATE: 20170213
